FAERS Safety Report 22182729 (Version 1)
Quarter: 2023Q2

REPORT INFORMATION
  Report Type: Report from Study
  Country: US (occurrence: US)
  Receive Date: 20230406
  Receipt Date: 20230406
  Transmission Date: 20230721
  Serious: Yes (Hospitalization, Other)
  Sender: FDA-Public Use
  Company Number: US-ABBVIE-4717760

PATIENT
  Age: 17 Year
  Sex: Male

DRUGS (1)
  1. SKYRIZI [Suspect]
     Active Substance: RISANKIZUMAB-RZAA
     Indication: Crohn^s disease
     Route: 058
     Dates: start: 20221001

REACTIONS (8)
  - Hospitalisation [Unknown]
  - Central venous catheter removal [Unknown]
  - Streptococcal infection [Recovered/Resolved]
  - Crohn^s disease [Unknown]
  - Pneumonia [Recovered/Resolved]
  - Vascular device infection [Unknown]
  - Transfusion [Unknown]
  - Influenza [Recovered/Resolved]

NARRATIVE: CASE EVENT DATE: 20230101
